FAERS Safety Report 9082211 (Version 1)
Quarter: 2013Q1

REPORT INFORMATION
  Report Type: Report from Study
  Country: US (occurrence: US)
  Receive Date: 20130130
  Receipt Date: 20130130
  Transmission Date: 20140127
  Serious: No
  Sender: FDA-Public Use
  Company Number: US-ABBOTT-12P-163-0981991-00

PATIENT
  Age: 41 Year
  Sex: Female

DRUGS (2)
  1. HUMIRA [Suspect]
     Indication: CROHN^S DISEASE
  2. AMBIEN [Concomitant]
     Indication: INSOMNIA
     Dosage: AT BEDTIME

REACTIONS (5)
  - Visual impairment [Unknown]
  - Lip swelling [Not Recovered/Not Resolved]
  - Urticaria [Unknown]
  - Hyperhidrosis [Unknown]
  - Chills [Unknown]
